FAERS Safety Report 9454489 (Version 1)
Quarter: 2013Q3

REPORT INFORMATION
  Report Type: Spontaneous
  Country: US (occurrence: None)
  Receive Date: 20130808
  Receipt Date: 20130808
  Transmission Date: 20140515
  Serious: No
  Sender: FDA-Public Use
  Company Number: TPA2013A07406

PATIENT
  Sex: Male

DRUGS (1)
  1. OMONTYS (PEGINESATIDE) SOLUTION FOR INJECTION [Suspect]
     Route: 042
     Dates: start: 201303, end: 201304

REACTIONS (5)
  - Pain [None]
  - Furuncle [None]
  - Pruritus [None]
  - Dry skin [None]
  - Scab [None]
